FAERS Safety Report 17486952 (Version 4)
Quarter: 2020Q2

REPORT INFORMATION
  Report Type: Spontaneous
  Country: US (occurrence: US)
  Receive Date: 20200303
  Receipt Date: 20200424
  Transmission Date: 20200713
  Serious: No
  Sender: FDA-Public Use
  Company Number: US-UNITED THERAPEUTICS-UNT-2020-003111

PATIENT
  Age: 92 Year
  Sex: Male
  Weight: 93.42 kg

DRUGS (7)
  1. TYVASO [Suspect]
     Active Substance: TREPROSTINIL
     Dosage: 18-54 ?G, QID
  2. TYVASO [Suspect]
     Active Substance: TREPROSTINIL
     Indication: PULMONARY ARTERIAL HYPERTENSION
     Dosage: 24 ?G, QID
     Dates: start: 202002
  3. TYVASO [Suspect]
     Active Substance: TREPROSTINIL
     Dosage: 18 ?G, QID
     Dates: start: 202002, end: 202002
  4. TYVASO [Suspect]
     Active Substance: TREPROSTINIL
     Dosage: UNK
     Dates: start: 20200210
  5. TYVASO [Suspect]
     Active Substance: TREPROSTINIL
     Dosage: UNK
  6. TYVASO [Suspect]
     Active Substance: TREPROSTINIL
     Dosage: UNK
  7. TYVASO [Suspect]
     Active Substance: TREPROSTINIL
     Dosage: 54 ?G, UNK

REACTIONS (6)
  - Headache [Recovered/Resolved]
  - Cough [Unknown]
  - Hypersomnia [Unknown]
  - Dizziness [Unknown]
  - Inappropriate schedule of product administration [Unknown]
  - Flushing [Unknown]

NARRATIVE: CASE EVENT DATE: 202002
